FAERS Safety Report 6215122-2 (Version None)
Quarter: 2009Q2

REPORT INFORMATION
  Report Type: 
  Country: None (occurrence: None)
  Receive Date: 20090604
  Receipt Date: 20090415
  Transmission Date: 20091009
  Serious: Yes (Hospitalization, Other)
  Sender: FDA-Public Use
  Company Number: US-PFIZER INC-2008152640

PATIENT
  Sex: Female
  Weight: 97.052 kg

DRUGS (30)
  1. ANIDULAFUNGIN [Suspect]
     Indication: CANDIDIASIS
     Dosage: 200 MG, 1X/DAY
     Route: 042
     Dates: start: 20080922, end: 20080922
  2. ANIDULAFUNGIN [Suspect]
     Dosage: 100 MG, 1X/DAY
     Route: 042
     Dates: start: 20080923, end: 20081007
  3. NORVASC [Concomitant]
     Dosage: UNK
     Route: 048
     Dates: start: 20080921, end: 20081014
  4. FOLIC ACID [Concomitant]
     Dosage: UNK
     Route: 048
     Dates: start: 20080921
  5. MORPHINE [Concomitant]
     Dosage: UNK
     Route: 042
     Dates: start: 20080918, end: 20081202
  6. ZOFRAN [Concomitant]
     Dosage: UNK
     Route: 042
     Dates: start: 20080921, end: 20081117
  7. NOVOLIN R [Concomitant]
     Dosage: UNK
     Route: 058
     Dates: start: 20080919, end: 20081202
  8. PROTONIX [Concomitant]
     Dosage: UNK
     Route: 042
     Dates: start: 20080919, end: 20081202
  9. METRONIDAZOLE [Concomitant]
     Dosage: UNK
     Route: 048
     Dates: start: 20080918, end: 20081212
  10. LASIX [Concomitant]
     Dosage: UNK
     Route: 048
     Dates: start: 20080919
  11. SOLU-MEDROL [Concomitant]
     Dosage: UNK
     Route: 048
     Dates: start: 20080918, end: 20081202
  12. HCT ^CT-ARZNEIMITTEL^ [Concomitant]
     Dosage: UNK
     Route: 048
     Dates: start: 20080921
  13. AVAPRO [Concomitant]
     Dosage: UNK
     Route: 048
     Dates: start: 20080921
  14. KENALOG-40 [Concomitant]
     Dosage: UNK
     Route: 030
     Dates: start: 20081015, end: 20081015
  15. ASPIRIN [Concomitant]
     Dosage: UNK
     Route: 048
  16. AMLODIPINE [Concomitant]
     Dosage: UNK
     Route: 048
     Dates: start: 20080915
  17. CELEBREX [Concomitant]
     Dosage: UNK
     Route: 048
     Dates: start: 20080915, end: 20080922
  18. DIOVAN HCT [Concomitant]
  19. LOVENOX [Concomitant]
     Dosage: UNK
     Route: 058
     Dates: start: 20081008, end: 20081202
  20. LORAZEPAM [Concomitant]
     Dosage: UNK
     Route: 048
     Dates: start: 20081002, end: 20081020
  21. PREDNISONE [Concomitant]
     Dosage: UNK
     Route: 048
     Dates: start: 20080101
  22. SOLU-CORTEF [Concomitant]
     Dosage: UNK
     Route: 045
     Dates: start: 20081006, end: 20081205
  23. HEPARIN [Concomitant]
     Dosage: UNK
     Route: 042
     Dates: start: 20080923, end: 20081121
  24. ZYVOX [Concomitant]
     Dosage: UNK
     Route: 042
     Dates: start: 20081010, end: 20081020
  25. PHENERGAN ^AVENTIS PHARMA^ [Concomitant]
     Dosage: UNK
     Route: 042
     Dates: start: 20081014, end: 20081213
  26. METOPROLOL [Concomitant]
     Dosage: UNK
     Route: 048
     Dates: start: 20081004, end: 20081203
  27. QUESTRAN [Concomitant]
     Dosage: UNK
     Route: 061
     Dates: start: 20080927, end: 20081126
  28. TYLENOL (CAPLET) [Concomitant]
     Dosage: UNK
     Route: 048
     Dates: start: 20081005, end: 20081204
  29. CHLORASEPTIC SORE THROAT SPRAY [Concomitant]
     Dosage: UNK
     Route: 048
     Dates: start: 20080920, end: 20081119
  30. POTASSIUM CHLORIDE [Concomitant]
     Dosage: UNK
     Route: 042
     Dates: start: 20081020, end: 20081020

REACTIONS (3)
  - ABSCESS [None]
  - DIVERTICULAR PERFORATION [None]
  - PULMONARY EMBOLISM [None]
